FAERS Safety Report 13657434 (Version 1)
Quarter: 2017Q2

REPORT INFORMATION
  Report Type: Spontaneous
  Country: PL (occurrence: PL)
  Receive Date: 20170615
  Receipt Date: 20170615
  Transmission Date: 20170830
  Serious: Yes (Other)
  Sender: FDA-Public Use
  Company Number: PL-NOVOPROD-548694

PATIENT
  Age: 51 Year
  Sex: Female

DRUGS (4)
  1. INSULATARD HM PENFILL [Suspect]
     Active Substance: INSULIN NOS
     Indication: TYPE 2 DIABETES MELLITUS
     Dosage: 5 U
     Route: 058
  2. ACTRAPID [Suspect]
     Active Substance: INSULIN HUMAN
     Indication: TYPE 2 DIABETES MELLITUS
     Dosage: 15 U, QD (6 UNITS BEFORE BREAKFAST, 3 UNITS BEFORE DINNER, 6 UNITS BEFORE SUPPER)
     Route: 065
  3. ACTRAPID [Suspect]
     Active Substance: INSULIN HUMAN
     Dosage: 23 U, TID 10 UNITS BEFORE BREAKFAST, 5 UNITS BEFORE DINNER AND 8 UNITS BEFORE SUPPER
     Route: 065
     Dates: start: 200911
  4. INSULATARD HM PENFILL [Suspect]
     Active Substance: INSULIN NOS
     Dosage: 13 U, QD (13 UNITS BEFORE BED TIME)
     Route: 058
     Dates: start: 200911

REACTIONS (4)
  - Vitiligo [Unknown]
  - Diabetes mellitus inadequate control [Unknown]
  - Non-alcoholic steatohepatitis [Unknown]
  - Hypoglycaemia [Unknown]

NARRATIVE: CASE EVENT DATE: 201406
